FAERS Safety Report 8645920 (Version 2)
Quarter: 2014Q1

REPORT INFORMATION
  Report Type: Spontaneous
  Country: US (occurrence: None)
  Receive Date: 20120323
  Receipt Date: 20130305
  Transmission Date: 20141002
  Serious: Yes (Hospitalization)
  Sender: FDA-Public Use
  Company Number: 163-21880-11093514

PATIENT
  Age: 79 Year
  Sex: Female
  Weight: 63.96 kg

DRUGS (9)
  1. REVLIMID [Suspect]
     Indication: PLASMA CELL MYELOMA
     Route: 048
     Dates: start: 20100101, end: 20110724
  2. ZOMETA (ZOLEDRONIC ACID) (INJECTION FOR INFUSION) [Concomitant]
  3. DECADRON [Concomitant]
  4. AMLODIPINE [Concomitant]
  5. CLONIDINE TRANSDERMAL SYSTEM [Concomitant]
  6. SODIUM BICARBONATE [Concomitant]
  7. ASPIRIN (ACETYLSALICYLIC ACID) [Concomitant]
  8. INSULIN DEPENDENT (INSULIN) [Concomitant]
  9. LANTUS [Concomitant]

REACTIONS (5)
  - Renal failure acute [None]
  - Malaise [None]
  - Vomiting [None]
  - Disease progression [None]
  - Plasma cell myeloma [None]
